FAERS Safety Report 5525245-9 (Version None)
Quarter: 2007Q4

REPORT INFORMATION
  Report Type: 
  Country: None (occurrence: None)
  Receive Date: 20071126
  Receipt Date: 20071121
  Transmission Date: 20080405
  Serious: Yes (Death)
  Sender: FDA-Public Use
  Company Number: US-BRISTOL-MYERS SQUIBB COMPANY-13989777

PATIENT
  Age: 83 Year
  Sex: Male

DRUGS (1)
  1. COUMADIN [Suspect]

REACTIONS (1)
  - DEATH [None]
